FAERS Safety Report 8006841-6 (Version None)
Quarter: 2011Q4

REPORT INFORMATION
  Report Type: 
  Country: None (occurrence: None)
  Receive Date: 20111123
  Receipt Date: 20110912
  Transmission Date: 20120403
  Serious: No
  Sender: FDA-Public Use
  Company Number: 332762

PATIENT
  Age: 60 Year
  Sex: Female

DRUGS (1)
  1. VICTOZA [Suspect]
     Indication: TYPE 2 DIABETES MELLITUS
     Dosage: 1.2 MG, QD, SUBCUTANEOUS
     Route: 058
     Dates: start: 20110706

REACTIONS (7)
  - HEADACHE [None]
  - NAUSEA [None]
  - DIZZINESS [None]
  - BLOOD GLUCOSE DECREASED [None]
  - ASTHENIA [None]
  - VISUAL IMPAIRMENT [None]
  - VOMITING [None]
